FAERS Safety Report 24060971 (Version 1)
Quarter: 2024Q3

REPORT INFORMATION
  Report Type: Spontaneous
  Country: US (occurrence: US)
  Receive Date: 20240708
  Receipt Date: 20240708
  Transmission Date: 20241017
  Serious: No
  Sender: BAYER
  Company Number: US-BAYER-2024A095184

PATIENT
  Age: 35 Year
  Sex: Female

DRUGS (1)
  1. MIRENA [Suspect]
     Active Substance: LEVONORGESTREL
     Dosage: 20?G/DAY
     Route: 015
     Dates: start: 20240119, end: 20240628

REACTIONS (4)
  - Fatigue [None]
  - Headache [None]
  - Breast tenderness [None]
  - Vaginal discharge [None]

NARRATIVE: CASE EVENT DATE: 20240610
